FAERS Safety Report 12118646 (Version 1)
Quarter: 2016Q1

REPORT INFORMATION
  Report Type: Spontaneous
  Country: US (occurrence: None)
  Receive Date: 20160225
  Receipt Date: 20160225
  Transmission Date: 20160526
  Serious: Yes (Other)
  Sender: FDA-Public Use
  Company Number: None

PATIENT
  Age: 46 Year
  Sex: Female
  Weight: 63.5 kg

DRUGS (3)
  1. TYLENOL [Concomitant]
     Active Substance: ACETAMINOPHEN
  2. BACLOFEN 10 MG TAB GENERIC FOR LIORESAL, NR #30 [Suspect]
     Active Substance: BACLOFEN
     Indication: MUSCLE SPASMS
     Dosage: 10 MG, 1 TAB. AS NEEDED 1 TAB 3XDAILY, ONLY 1 TABLET BY MOUTH
     Dates: start: 20160129, end: 20160129
  3. BACLOFEN. [Concomitant]
     Active Substance: BACLOFEN

REACTIONS (2)
  - Paralysis [None]
  - Aphasia [None]

NARRATIVE: CASE EVENT DATE: 20160129
